FAERS Safety Report 4955436-7 (Version None)
Quarter: 2006Q1

REPORT INFORMATION
  Report Type: 
  Country: None (occurrence: None)
  Receive Date: 20060328
  Receipt Date: 20060317
  Transmission Date: 20060701
  Serious: Yes (Death)
  Sender: FDA-Public Use
  Company Number: JP-AVENTIS-200610915JP

PATIENT
  Age: 86 Year
  Sex: Female

DRUGS (13)
  1. AMOBAN [Suspect]
     Route: 048
     Dates: start: 20060301, end: 20060301
  2. LASIX [Suspect]
     Indication: HYPERTENSION
     Route: 048
     Dates: end: 20060302
  3. TAMIFLU [Suspect]
     Route: 048
     Dates: start: 20060227, end: 20060302
  4. INTEBAN [Suspect]
     Indication: PYREXIA
     Route: 054
     Dates: start: 20060227, end: 20060303
  5. LOXONIN [Suspect]
     Indication: PYREXIA
     Route: 048
     Dates: start: 20060227, end: 20060302
  6. NU-LOTAN [Suspect]
     Indication: HYPERTENSION
     Route: 048
     Dates: end: 20060302
  7. BEPRICOR [Suspect]
     Indication: HYPERTENSION
     Route: 048
     Dates: end: 20060302
  8. CEFAMEZIN [Suspect]
     Indication: PNEUMONIA
     Route: 041
     Dates: start: 20060301, end: 20060302
  9. CLINDAMYCIN [Suspect]
     Indication: PNEUMONIA
     Route: 041
     Dates: start: 20060302, end: 20060303
  10. MEROPEN [Suspect]
     Indication: PNEUMONIA
     Route: 048
     Dates: start: 20060302, end: 20060303
  11. WARFARIN [Concomitant]
     Indication: ARRHYTHMIA
     Route: 048
     Dates: end: 20060302
  12. NEUTROGIN [Concomitant]
     Indication: WHITE BLOOD CELL COUNT DECREASED
     Route: 058
     Dates: start: 20060301, end: 20060303
  13. ARGAMATE [Concomitant]
     Route: 048
     Dates: end: 20060302

REACTIONS (5)
  - AGRANULOCYTOSIS [None]
  - BLOOD PRESSURE DECREASED [None]
  - DYSPNOEA [None]
  - LEUKOPENIA [None]
  - WHEEZING [None]
